FAERS Safety Report 6016921-2 (Version None)
Quarter: 2008Q4

REPORT INFORMATION
  Report Type: 
  Country: None (occurrence: None)
  Receive Date: 20081218
  Receipt Date: 20081209
  Transmission Date: 20090506
  Serious: Yes (Other)
  Sender: FDA-Public Use
  Company Number: CHPA2008US21928

PATIENT
  Sex: Female

DRUGS (1)
  1. THERAFLU NIGHTTIME SEVERE COLD WARMING SYRUP (NCH) (PARACETAMOL, DIPHE [Suspect]
     Dosage: 6 TSP, ONCE/SINGLE, ORAL
     Route: 048
     Dates: start: 20081209, end: 20081209

REACTIONS (1)
  - BLOOD GLUCOSE INCREASED [None]
